FAERS Safety Report 9506938 (Version 1)
Quarter: 2013Q3

REPORT INFORMATION
  Report Type: Spontaneous
  Country: US (occurrence: US)
  Receive Date: 20130909
  Receipt Date: 20130909
  Transmission Date: 20140515
  Serious: No
  Sender: FDA-Public Use
  Company Number: US-009507513-1309USA002026

PATIENT
  Sex: Female

DRUGS (1)
  1. MAXALT [Suspect]
     Indication: MIGRAINE
     Dosage: 1 STANDARD PACKAGE PACKET OF 18
     Route: 048

REACTIONS (2)
  - Migraine [Unknown]
  - Product blister packaging issue [Unknown]
